FAERS Safety Report 6766124-9 (Version None)
Quarter: 2010Q2

REPORT INFORMATION
  Report Type: 
  Country: None (occurrence: None)
  Receive Date: 20100609
  Receipt Date: 20100524
  Transmission Date: 20101027
  Serious: Yes (Other)
  Sender: FDA-Public Use
  Company Number: BR-1182123

PATIENT
  Age: 54 Year
  Sex: Female

DRUGS (3)
  1. DUOTRAV (DUOTRAV) 0.004/0.5 % LOT # 161535F EYE DROPS, SOLUTION [Suspect]
     Indication: GLAUCOMA
     Dosage: 1 GTT QD OD
     Route: 047
     Dates: start: 20091101
  2. DIOVAN [Concomitant]
  3. CLONAZEPAM [Concomitant]

REACTIONS (10)
  - ANAEMIA [None]
  - BALANCE DISORDER [None]
  - DIARRHOEA [None]
  - DIZZINESS [None]
  - DRY MOUTH [None]
  - HAEMATURIA [None]
  - MENTAL DISORDER [None]
  - MENTAL IMPAIRMENT [None]
  - MYALGIA [None]
  - SKIN NODULE [None]
